FAERS Safety Report 17079034 (Version 3)
Quarter: 2024Q1

REPORT INFORMATION
  Report Type: Spontaneous
  Country: US (occurrence: US)
  Receive Date: 20191127
  Receipt Date: 20240203
  Transmission Date: 20240410
  Serious: Yes (Hospitalization, Other)
  Sender: FDA-Public Use
  Company Number: US-MLMSERVICE-20191108-2036439-1

PATIENT
  Age: 86 Year
  Sex: Female

DRUGS (3)
  1. TRAMADOL [Interacting]
     Active Substance: TRAMADOL\TRAMADOL HYDROCHLORIDE
     Indication: Pain
     Dosage: UNK
     Route: 065
  2. WARFARIN SODIUM [Interacting]
     Active Substance: WARFARIN SODIUM
     Indication: Atrial fibrillation
     Dosage: UNK
     Route: 065
  3. GABAPENTIN [Concomitant]
     Active Substance: GABAPENTIN
     Indication: Neuropathy peripheral
     Dosage: UNK
     Route: 065

REACTIONS (3)
  - International normalised ratio increased [Recovering/Resolving]
  - Rectal haemorrhage [Recovering/Resolving]
  - Drug interaction [Recovering/Resolving]
